FAERS Safety Report 15203543 (Version 22)
Quarter: 2019Q4

REPORT INFORMATION
  Report Type: Report from Study
  Country: DE (occurrence: DE)
  Receive Date: 20180726
  Receipt Date: 20191226
  Transmission Date: 20200122
  Serious: Yes (Hospitalization, Other)
  Sender: FDA-Public Use
  Company Number: DE-INCYTE CORPORATION-2016IN008279

PATIENT

DRUGS (23)
  1. METOPROLOL. [Concomitant]
     Active Substance: METOPROLOL
     Indication: HYPERTENSION
     Dosage: 50 MG, BID (1-0-0-1)
     Route: 048
     Dates: start: 20130114
  2. METFORMIN, METFORMIN HYDROCHLORIDE [Concomitant]
     Indication: DIABETES MELLITUS
     Dosage: 850 MG, QD (0-0-0-1)
     Route: 048
     Dates: start: 20130114
  3. AMITRIPTYLINE [Concomitant]
     Active Substance: AMITRIPTYLINE
     Dosage: 2 DF, QD
     Route: 048
     Dates: start: 20190429
  4. RAMIPRIL. [Concomitant]
     Active Substance: RAMIPRIL
     Indication: HYPERTENSION
     Dosage: 5 MG, BID (1-0-1-0)
     Route: 048
     Dates: start: 20130114
  5. ACICLOVIR [Concomitant]
     Active Substance: ACYCLOVIR
     Indication: HERPES ZOSTER
     Dosage: 400 MG, QD (1-0-0-0)
     Route: 048
     Dates: start: 20180716
  6. JAKAVI [Suspect]
     Active Substance: RUXOLITINIB
     Dosage: 5 MG, BID
     Route: 048
     Dates: start: 20180710, end: 20190711
  7. JAKAVI [Suspect]
     Active Substance: RUXOLITINIB
     Dosage: 5 MG, BID
     Route: 048
     Dates: start: 20190718
  8. OMEPRAZOLE. [Concomitant]
     Active Substance: OMEPRAZOLE
     Indication: GASTRIC ULCER
     Dosage: 20 MG, QD (1-0-0-0)
     Route: 048
     Dates: start: 20130114
  9. ASPIRIN. [Concomitant]
     Active Substance: ASPIRIN
     Indication: GASTRIC ULCER
     Dosage: 100 MG, QD (1-0-0-0)
     Route: 048
     Dates: start: 20130114
  10. PRAVASTATIN. [Concomitant]
     Active Substance: PRAVASTATIN
     Indication: GASTRIC ULCER
     Dosage: 20 MG, QD (0-0-0-1)
     Route: 048
     Dates: start: 20130114
  11. GABAPENTIN. [Concomitant]
     Active Substance: GABAPENTIN
     Indication: HERPES ZOSTER
     Dosage: 1 DF, QID (1-1-1-1)
     Route: 048
     Dates: start: 20150515
  12. PALEXIA [Concomitant]
     Active Substance: TAPENTADOL HYDROCHLORIDE
     Dosage: 100 MG, QD
     Route: 048
     Dates: start: 20190206
  13. EMSELEX [Concomitant]
     Active Substance: DARIFENACIN HYDROBROMIDE
     Indication: PROPHYLAXIS
     Dosage: 7.5 MG, UNK
     Route: 048
     Dates: start: 20190612
  14. JAKAVI [Suspect]
     Active Substance: RUXOLITINIB
     Indication: POLYCYTHAEMIA VERA
     Dosage: 20 MG (15+5 MG), QD
     Route: 048
     Dates: start: 20161128, end: 20170109
  15. AMITRIPTYLINE [Concomitant]
     Active Substance: AMITRIPTYLINE
     Indication: HERPES ZOSTER
     Dosage: 1 DF, QD (0-0-0-1)
     Route: 048
     Dates: start: 20170610, end: 20190428
  16. SPASMOLYT [Concomitant]
     Active Substance: TROSPIUM CHLORIDE
     Indication: PROPHYLAXIS
     Dosage: 10 MG, BID
     Route: 048
     Dates: start: 20180905, end: 20190611
  17. AMLODIPIN [Concomitant]
     Active Substance: AMLODIPINE BESYLATE
     Indication: HYPERTENSION
     Dosage: 5 MG, UNK
     Route: 048
     Dates: start: 20130114
  18. PALEXIA [Concomitant]
     Active Substance: TAPENTADOL HYDROCHLORIDE
     Indication: HERPES ZOSTER
     Dosage: 1 DF (100 MG), TID (1-1-1-0)
     Route: 048
     Dates: start: 20171013, end: 20180709
  19. MOVICOL [Concomitant]
     Active Substance: POLYETHYLENE GLYCOL 3350\POTASSIUM CHLORIDE\SODIUM BICARBONATE\SODIUM CHLORIDE
     Indication: CONSTIPATION PROPHYLAXIS
     Dosage: UNK UNK, PRN (AS NEEDED)
     Route: 048
     Dates: start: 20180710
  20. FOSTER [Concomitant]
     Active Substance: BECLOMETHASONE\FORMOTEROL
     Indication: LUNG DISORDER
     Dosage: 1 DF, BID (1-0-1-0)
     Route: 048
     Dates: start: 20140120
  21. PALEXIA [Concomitant]
     Active Substance: TAPENTADOL HYDROCHLORIDE
     Dosage: 1 DF (50 MG), TID (1-1-1-0)
     Route: 048
     Dates: start: 20180710, end: 20180716
  22. HCT [Concomitant]
     Active Substance: HYDROCHLOROTHIAZIDE
     Indication: HYPERTENSION
     Dosage: 25 MG, QD (1-0-0)
     Route: 048
     Dates: start: 20180716
  23. JAKAVI [Suspect]
     Active Substance: RUXOLITINIB
     Dosage: 20 MG, (15+5 MG), QD
     Route: 048
     Dates: start: 20170208, end: 20180709

REACTIONS (19)
  - Peripheral artery occlusion [Recovered/Resolved]
  - Diarrhoea [Recovered/Resolved]
  - Squamous cell carcinoma of skin [Recovered/Resolved]
  - Abdominal pain [Recovered/Resolved]
  - Anaemia [Recovered/Resolved]
  - Malignant neoplasm progression [Recovered/Resolved]
  - Urinary tract infection [Recovered/Resolved]
  - Anaemia [Not Recovered/Not Resolved]
  - Hyperlipidaemia [Not Recovered/Not Resolved]
  - Anaemia [Recovered/Resolved]
  - Urinary tract infection [Recovered/Resolved]
  - Adnexa uteri cyst [Recovered/Resolved]
  - Peripheral artery stenosis [Recovered/Resolved]
  - Post procedural haemorrhage [Recovered/Resolved]
  - Pancytopenia [Not Recovered/Not Resolved]
  - Anaemia [Recovered/Resolved]
  - Serum ferritin increased [Not Recovered/Not Resolved]
  - Blood potassium increased [Recovered/Resolved]
  - Anaemia postoperative [Recovered/Resolved]

NARRATIVE: CASE EVENT DATE: 20161128
